FAERS Safety Report 20016071 (Version 1)
Quarter: 2021Q4

REPORT INFORMATION
  Report Type: Spontaneous
  Country: US (occurrence: None)
  Receive Date: 20211102
  Receipt Date: 20211102
  Transmission Date: 20220303
  Serious: Yes (Hospitalization)
  Sender: FDA-Public Use
  Company Number: None

PATIENT
  Age: 51 Year
  Sex: Female
  Weight: 56.7 kg

DRUGS (5)
  1. .DELTA.8-TETRAHYDROCANNABINOL\HERBALS [Suspect]
     Active Substance: .DELTA.8-TETRAHYDROCANNABINOL\HERBALS
     Indication: Back pain
     Dosage: OTHER QUANTITY : 1 BAR;?
     Route: 048
     Dates: start: 20211011, end: 20211011
  2. TAMOXIFEN [Concomitant]
     Active Substance: TAMOXIFEN
  3. ASPIRIN [Concomitant]
     Active Substance: ASPIRIN
  4. VITAMINS [Concomitant]
     Active Substance: VITAMINS
  5. PROBIOTICS NOS [Concomitant]
     Active Substance: PROBIOTICS NOS

REACTIONS (8)
  - Gait disturbance [None]
  - Mental disorder [None]
  - Movement disorder [None]
  - Pain [None]
  - Hypersensitivity [None]
  - Screaming [None]
  - Hallucination [None]
  - Post-traumatic stress disorder [None]

NARRATIVE: CASE EVENT DATE: 20211011
